FAERS Safety Report 14355315 (Version 3)
Quarter: 2018Q1

REPORT INFORMATION
  Report Type: Spontaneous
  Country: CZ (occurrence: CZ)
  Receive Date: 20180105
  Receipt Date: 20180330
  Transmission Date: 20180509
  Serious: Yes (Hospitalization, Other)
  Sender: FDA-Public Use
  Company Number: CZ-AUROBINDO-AUR-APL-2018-000340

PATIENT
  Age: 82 Year
  Sex: Female

DRUGS (45)
  1. IBUPROFEN. [Suspect]
     Active Substance: IBUPROFEN
     Indication: PAIN
     Dosage: TABLET
     Route: 048
  2. DIAZEPAM. [Suspect]
     Active Substance: DIAZEPAM
     Dosage: ()
     Route: 042
  3. TRITACE [Concomitant]
     Active Substance: RAMIPRIL
     Dosage: ()
     Route: 048
  4. CEFTRIAXON [Suspect]
     Active Substance: CEFTRIAXONE
     Dosage: ()
     Route: 048
  5. PHENYTOIN. [Suspect]
     Active Substance: PHENYTOIN
     Indication: PARTIAL SEIZURES
     Dosage: 20 MILLIGRAM/KILOGRAM
     Route: 042
  6. PHENYTOIN. [Suspect]
     Active Substance: PHENYTOIN
     Indication: PRODUCT USED FOR UNKNOWN INDICATION
     Dosage: ()
     Route: 065
  7. MILURIT [Suspect]
     Active Substance: ALLOPURINOL
     Indication: GOUT
     Dosage: TABLET
     Route: 048
  8. MILURIT [Suspect]
     Active Substance: ALLOPURINOL
     Dosage: ()
     Route: 048
  9. TRITACE [Concomitant]
     Active Substance: RAMIPRIL
     Dosage: ()
     Route: 048
  10. CYNT                               /00985301/ [Concomitant]
     Active Substance: MOXONIDINE
     Indication: HYPERTENSION
     Dosage: TABLET
     Route: 048
  11. VASILIP [Concomitant]
     Active Substance: SIMVASTATIN
     Indication: HYPERCHOLESTEROLAEMIA
     Dosage: TABLET
     Route: 048
  12. GLIQUIDONE [Concomitant]
     Active Substance: GLIQUIDONE
     Indication: PRODUCT USED FOR UNKNOWN INDICATION
     Dosage: TABLET
     Route: 048
  13. FLUCONAZOLE. [Suspect]
     Active Substance: FLUCONAZOLE
     Indication: PNEUMONIA
     Dosage: TABLET
     Route: 048
  14. CEFTRIAXON [Suspect]
     Active Substance: CEFTRIAXONE
     Dosage: ()
     Route: 048
  15. MILURIT [Suspect]
     Active Substance: ALLOPURINOL
     Dosage: ()
     Route: 048
  16. METAMIZOLE [Suspect]
     Active Substance: METAMIZOLE
     Indication: PAIN
     Dosage: UNK
     Route: 048
  17. VALPROATE [Suspect]
     Active Substance: VALPROIC ACID
     Indication: PARTIAL SEIZURES
     Dosage: 30 MG/KG,
     Route: 042
  18. IBUPROFEN. [Suspect]
     Active Substance: IBUPROFEN
     Indication: PRODUCT USED FOR UNKNOWN INDICATION
     Dosage: ()
     Route: 065
  19. GODASAL [Concomitant]
     Active Substance: ASPIRIN\GLYCINE
     Dosage: ()
     Route: 048
  20. EUTHYROX [Concomitant]
     Active Substance: LEVOTHYROXINE SODIUM
     Dosage: ()
     Route: 048
  21. TRITACE [Concomitant]
     Active Substance: RAMIPRIL
     Indication: HYPERTENSION
     Dosage: ()
     Route: 048
  22. DIAZEPAM. [Suspect]
     Active Substance: DIAZEPAM
     Dosage: ()
     Route: 042
  23. EUTHYROX [Concomitant]
     Active Substance: LEVOTHYROXINE SODIUM
     Dosage: ()
     Route: 048
  24. LEVETIRACETAM. [Suspect]
     Active Substance: LEVETIRACETAM
     Indication: PARTIAL SEIZURES
     Dosage: 40 MILLIGRAM/KILOGRAM
     Route: 042
  25. CEFTRIAXON [Suspect]
     Active Substance: CEFTRIAXONE
     Dosage: ()
     Route: 048
  26. DIAZEPAM. [Suspect]
     Active Substance: DIAZEPAM
     Indication: PARTIAL SEIZURES
     Dosage: UNK
     Route: 042
  27. GODASAL [Concomitant]
     Active Substance: ASPIRIN\GLYCINE
     Dosage: ()
     Route: 048
  28. LOKREN [Concomitant]
     Active Substance: BETAXOLOL HYDROCHLORIDE
     Indication: HYPERTENSION
     Dosage: TABLETY
     Route: 048
  29. PARACETAMOL TABLET [Suspect]
     Active Substance: ACETAMINOPHEN
     Indication: PAIN
     Dosage: UNK
     Route: 048
  30. AMOXICILLIN. [Suspect]
     Active Substance: AMOXICILLIN
     Dosage: ()
     Route: 048
  31. AMOXICILLIN. [Suspect]
     Active Substance: AMOXICILLIN
     Dosage: ()
     Route: 048
  32. TRITACE [Concomitant]
     Active Substance: RAMIPRIL
     Dosage: ()
     Route: 048
  33. LOKREN [Concomitant]
     Active Substance: BETAXOLOL HYDROCHLORIDE
     Dosage: ()
     Route: 048
  34. AMOXICILLIN. [Suspect]
     Active Substance: AMOXICILLIN
     Dosage: ()
     Route: 048
  35. DIAZEPAM. [Suspect]
     Active Substance: DIAZEPAM
     Dosage: ()
     Route: 042
  36. GODASAL [Concomitant]
     Active Substance: ASPIRIN\GLYCINE
     Dosage: ()
     Route: 048
  37. EUTHYROX [Concomitant]
     Active Substance: LEVOTHYROXINE SODIUM
     Indication: HYPOTHYROIDISM
     Dosage: TABLET
     Route: 048
  38. CEFTRIAXON [Suspect]
     Active Substance: CEFTRIAXONE
     Indication: PNEUMONIA
     Dosage: TABLET
     Route: 048
  39. AMOXICILLIN. [Suspect]
     Active Substance: AMOXICILLIN
     Indication: PNEUMONIA
     Dosage: ()
     Route: 048
  40. MILURIT [Suspect]
     Active Substance: ALLOPURINOL
     Dosage: ()
     Route: 048
  41. GODASAL [Concomitant]
     Active Substance: ASPIRIN\GLYCINE
     Indication: PRODUCT USED FOR UNKNOWN INDICATION
     Dosage: TABLET
     Route: 048
  42. EUTHYROX [Concomitant]
     Active Substance: LEVOTHYROXINE SODIUM
     Dosage: ()
     Route: 048
  43. LOKREN [Concomitant]
     Active Substance: BETAXOLOL HYDROCHLORIDE
     Dosage: ()
     Route: 048
  44. LOKREN [Concomitant]
     Active Substance: BETAXOLOL HYDROCHLORIDE
     Dosage: ()
     Route: 048
  45. KAPIDIN [Concomitant]
     Active Substance: LERCANIDIPINE HYDROCHLORIDE
     Indication: HYPERTENSION
     Dosage: TABLET
     Route: 048

REACTIONS (1)
  - Stevens-Johnson syndrome [Recovering/Resolving]
